FAERS Safety Report 8352849-0 (Version None)
Quarter: 2012Q2

REPORT INFORMATION
  Report Type: 
  Country: None (occurrence: None)
  Receive Date: 20120511
  Receipt Date: 20120503
  Transmission Date: 20120825
  Serious: Yes (Hospitalization, Other)
  Sender: FDA-Public Use
  Company Number: US-BAYER-2011-044819

PATIENT
  Age: 21 Year
  Sex: Female
  Weight: 66 kg

DRUGS (6)
  1. DROSPIRENONE AND ETHINYL ESTRADIOL [Suspect]
     Indication: CONTRACEPTION
     Dosage: UNK
     Dates: start: 20080701, end: 20090508
  2. XANAX [Concomitant]
     Indication: ANXIETY
  3. LEVETIRACETAM [Concomitant]
  4. DROSPIRENONE AND ETHINYL ESTRADIOL [Suspect]
     Indication: PREMENSTRUAL SYNDROME
  5. YASMIN [Suspect]
     Indication: CONTRACEPTION
     Dosage: UNK
     Route: 048
     Dates: start: 20061224, end: 20080701
  6. YASMIN [Suspect]
     Indication: PREMENSTRUAL SYNDROME

REACTIONS (11)
  - CEREBRAL HAEMATOMA [None]
  - COORDINATION ABNORMAL [None]
  - GRAND MAL CONVULSION [None]
  - VISUAL IMPAIRMENT [None]
  - MENTAL DISORDER [None]
  - JUGULAR VEIN THROMBOSIS [None]
  - CONVULSION [None]
  - TONGUE BITING [None]
  - INJURY [None]
  - MIGRAINE [None]
  - PAIN [None]
